FAERS Safety Report 25996131 (Version 1)
Quarter: 2025Q4

REPORT INFORMATION
  Report Type: Spontaneous
  Country: JP (occurrence: JP)
  Receive Date: 20251104
  Receipt Date: 20251104
  Transmission Date: 20260117
  Serious: Yes (Death)
  Sender: BOEHRINGER INGELHEIM
  Company Number: JP-NBI-2025-BI-105325

PATIENT

DRUGS (1)
  1. OFEV [Suspect]
     Active Substance: NINTEDANIB
     Indication: Connective tissue disease-associated interstitial lung disease

REACTIONS (1)
  - Lung neoplasm malignant [Fatal]
